FAERS Safety Report 21658745 (Version 1)
Quarter: 2022Q4

REPORT INFORMATION
  Report Type: Spontaneous
  Country: US (occurrence: None)
  Receive Date: 20221128
  Receipt Date: 20221128
  Transmission Date: 20230112
  Serious: Yes (Other)
  Sender: FDA-Public Use
  Company Number: None

PATIENT
  Age: 64 Year
  Sex: Female
  Weight: 90.72 kg

DRUGS (20)
  1. EXPAREL [Suspect]
     Active Substance: BUPIVACAINE
  2. ABILIFY [Concomitant]
     Active Substance: ARIPIPRAZOLE
  3. LAMICTAL [Concomitant]
     Active Substance: LAMOTRIGINE
  4. RIZITRIPBAN [Concomitant]
  5. ASPIRIN [Concomitant]
     Active Substance: ASPIRIN
  6. JUMERIC [Concomitant]
  7. VITAMIN C [Concomitant]
     Active Substance: ASCORBIC ACID
  8. VITAMIN D3 [Concomitant]
     Active Substance: CHOLECALCIFEROL
  9. HERS.... [Concomitant]
  10. NAIL VITAMIN [Concomitant]
  11. OMEPRAZOLE [Concomitant]
     Active Substance: OMEPRAZOLE
  12. OMEPRAZOLE [Concomitant]
     Active Substance: OMEPRAZOLE
  13. DEPLIN [Concomitant]
     Active Substance: LEVOMEFOLATE CALCIUM
  14. MAGNESIUM [Concomitant]
     Active Substance: MAGNESIUM
  15. XANAX [Concomitant]
     Active Substance: ALPRAZOLAM
  16. TEMAZEPAM [Concomitant]
     Active Substance: TEMAZEPAM
  17. COLACE [Concomitant]
     Active Substance: DOCUSATE SODIUM
  18. ATORVASTATIN [Concomitant]
     Active Substance: ATORVASTATIN
  19. FIBER GEL [Concomitant]
  20. ZINC [Concomitant]
     Active Substance: ZINC

REACTIONS (3)
  - Hepatic enzyme increased [None]
  - Musculoskeletal chest pain [None]
  - Abdominal pain upper [None]

NARRATIVE: CASE EVENT DATE: 20221026
